FAERS Safety Report 6469949-2 (Version None)
Quarter: 2009Q4

REPORT INFORMATION
  Report Type: 
  Country: None (occurrence: None)
  Receive Date: 20091203
  Receipt Date: 20071206
  Transmission Date: 20100525
  Serious: Yes (Hospitalization, Other)
  Sender: FDA-Public Use
  Company Number: FR-ELI_LILLY_AND_COMPANY-FR200712002075

PATIENT
  Age: 49 Year
  Sex: Male

DRUGS (3)
  1. ZYPREXA [Suspect]
     Indication: SCHIZOAFFECTIVE DISORDER
     Dosage: 20 MG, DAILY (1/D)
     Route: 048
     Dates: start: 20040101, end: 20070101
  2. DEPAKOTE [Concomitant]
     Route: 048
  3. INSULINE [Concomitant]
     Indication: TYPE 1 DIABETES MELLITUS
     Dosage: UNK, UNKNOWN
     Route: 058
     Dates: start: 19970101

REACTIONS (3)
  - AGGRESSION [None]
  - DIABETES MELLITUS INADEQUATE CONTROL [None]
  - PSYCHOTIC DISORDER [None]
